FAERS Safety Report 9640476 (Version 3)
Quarter: 2014Q3

REPORT INFORMATION
  Report Type: Spontaneous
  Country: US (occurrence: None)
  Receive Date: 20131021
  Receipt Date: 20140814
  Transmission Date: 20150326
  Serious: Yes (Hospitalization)
  Sender: FDA-Public Use
  Company Number: 2013US002352

PATIENT
  Age: 47 Year
  Sex: Male
  Weight: 110 kg

DRUGS (1)
  1. PONATINIB [Suspect]
     Active Substance: PONATINIB
     Indication: ACUTE LYMPHOCYTIC LEUKAEMIA
     Route: 048

REACTIONS (9)
  - Deep vein thrombosis [None]
  - Pericardial effusion [None]
  - Blood albumin decreased [None]
  - Hiatus hernia [None]
  - Pleural effusion [None]
  - Gastrooesophageal reflux disease [None]
  - Tachycardia [None]
  - Renal failure acute [None]
  - Atelectasis [None]

NARRATIVE: CASE EVENT DATE: 20130821
